FAERS Safety Report 9024246 (Version 1)
Quarter: 2013Q1

REPORT INFORMATION
  Report Type: Spontaneous
  Country: DE (occurrence: DE)
  Receive Date: 20130121
  Receipt Date: 20130121
  Transmission Date: 20140127
  Serious: Yes (Life-Threatening, Hospitalization, Other)
  Sender: FDA-Public Use
  Company Number: DE-JNJFOC-20121110091

PATIENT
  Age: 58 None
  Sex: Female
  Weight: 62 kg

DRUGS (3)
  1. DOXORUBICIN HYDROCHLORIDE (CAELYX) [Suspect]
     Indication: OVARIAN CANCER METASTATIC
     Route: 042
     Dates: start: 20121112, end: 20121112
  2. GRANISETRON [Concomitant]
     Route: 065
  3. PACLITAXEL [Concomitant]
     Indication: OVARIAN CANCER METASTATIC
     Route: 065

REACTIONS (1)
  - Drug intolerance [Not Recovered/Not Resolved]
